FAERS Safety Report 8960635 (Version 1)
Quarter: 2012Q4

REPORT INFORMATION
  Report Type: 
  Country: US (occurrence: US)
  Receive Date: 20121213
  Receipt Date: 20121213
  Transmission Date: 20130627
  Serious: Yes (Death, Other)
  Sender: FDA-Public Use
  Company Number: PHHY2012US113900

PATIENT
  Age: 22 Month
  Sex: Male

DRUGS (3)
  1. CICLOSPORIN [Suspect]
     Indication: HEART TRANSPLANT
  2. SOLUMEDROL [Concomitant]
     Indication: HEART TRANSPLANT
  3. AZATHIOPRINE [Concomitant]
     Indication: HEART TRANSPLANT

REACTIONS (7)
  - Multi-organ failure [Fatal]
  - Renal failure acute [Recovered/Resolved]
  - Urine output decreased [Recovered/Resolved]
  - Blood creatinine increased [Recovered/Resolved]
  - Immunosuppressant drug level increased [Recovered/Resolved]
  - Polyomavirus-associated nephropathy [Unknown]
  - Post transplant lymphoproliferative disorder [Unknown]
